FAERS Safety Report 20873121 (Version 2)
Quarter: 2022Q2

REPORT INFORMATION
  Report Type: Spontaneous
  Country: DE (occurrence: DE)
  Receive Date: 20220525
  Receipt Date: 20220601
  Transmission Date: 20220721
  Serious: Yes (Hospitalization, Other)
  Sender: FDA-Public Use
  Company Number: DE-TEVA-2022-DE-2034504

PATIENT
  Age: 70 Year
  Sex: Male
  Weight: 186 kg

DRUGS (6)
  1. SPIRONOLACTONE [Suspect]
     Active Substance: SPIRONOLACTONE
     Indication: Hypertension
     Dosage: 25 MILLIGRAM, QD
     Route: 065
  2. SPIRONOLACTONE [Suspect]
     Active Substance: SPIRONOLACTONE
     Dosage: 50 MILLIGRAM, QD, 50 MILLIGRAM DAILY;
     Route: 065
  3. CANDESARTAN [Concomitant]
     Active Substance: CANDESARTAN
     Dosage: 8 MILLIGRAM, QD, 8 MILLIGRAM DAILY;
  4. HYDROCHLOROTHIAZIDE [Concomitant]
     Active Substance: HYDROCHLOROTHIAZIDE
     Dosage: 12.5 MILLIGRAM, QD, 12.5 MILLIGRAM DAILY;
  5. ASPIRIN [Concomitant]
     Active Substance: ASPIRIN
     Dosage: 100 MILLIGRAM, QD, 100 MILLIGRAM DAILY;
  6. METOPROLOL [Concomitant]
     Active Substance: METOPROLOL
     Dosage: UNK, BID, 1-0-0.5
     Route: 065

REACTIONS (6)
  - Hypertension [Unknown]
  - Polyuria [Unknown]
  - Fatigue [Unknown]
  - Apathy [Unknown]
  - Hyponatraemia [Unknown]
  - Electrolyte imbalance [Unknown]
